FAERS Safety Report 25133387 (Version 1)
Quarter: 2025Q1

REPORT INFORMATION
  Report Type: Spontaneous
  Country: US (occurrence: US)
  Receive Date: 20250328
  Receipt Date: 20250328
  Transmission Date: 20250409
  Serious: No
  Sender: SANOFI AVENTIS
  Company Number: US-SA-2025SA089497

PATIENT
  Age: 73 Year

DRUGS (3)
  1. LANTUS [Suspect]
     Active Substance: INSULIN GLARGINE
     Indication: Diabetic retinopathy
     Dosage: 110 U, BID
     Route: 058
  2. LANTUS [Suspect]
     Active Substance: INSULIN GLARGINE
     Dosage: 50-60U,BID
     Route: 058
  3. LANTUS [Suspect]
     Active Substance: INSULIN GLARGINE
     Dosage: 60U QAM AND 50U QPM, BID
     Route: 058

REACTIONS (1)
  - Off label use [Unknown]
